FAERS Safety Report 9980131 (Version 1)
Quarter: 2014Q1

REPORT INFORMATION
  Report Type: Report from Study
  Country: US (occurrence: US)
  Receive Date: 20140307
  Receipt Date: 20140307
  Transmission Date: 20141002
  Serious: No
  Sender: FDA-Public Use
  Company Number: US-ABBVIE-13P-163-1174799-00

PATIENT
  Age: 50 Year
  Sex: Female
  Weight: 90.8 kg

DRUGS (2)
  1. HUMIRA [Suspect]
     Indication: PSORIASIS
     Dosage: ONE DOSE
     Dates: start: 201305, end: 201305
  2. HUMIRA [Suspect]
     Dosage: ONE WEEK AFTER 80 MG DOSE
     Dates: start: 2013

REACTIONS (1)
  - Back pain [Not Recovered/Not Resolved]
